FAERS Safety Report 8991967 (Version 2)
Quarter: 2013Q1

REPORT INFORMATION
  Report Type: Report from Study
  Country: US (occurrence: US)
  Receive Date: 20121231
  Receipt Date: 20130305
  Transmission Date: 20140127
  Serious: Yes (Hospitalization, Other)
  Sender: FDA-Public Use
  Company Number: US-ABBOTT-12P-163-1025733-00

PATIENT
  Age: 28 Year
  Sex: Female
  Weight: 61.29 kg

DRUGS (2)
  1. HUMIRA [Suspect]
     Indication: CROHN^S DISEASE
     Dates: start: 20121026, end: 20121026
  2. HUMIRA [Suspect]
     Dates: start: 20121109, end: 20121109

REACTIONS (9)
  - Abdominal adhesions [Unknown]
  - Abdominal pain [Unknown]
  - Fistula [Recovered/Resolved]
  - Ileal stenosis [Recovered/Resolved]
  - Procedural pain [Not Recovered/Not Resolved]
  - Weight decreased [Unknown]
  - Hypophagia [Recovered/Resolved]
  - Anastomotic leak [Unknown]
  - Post procedural complication [Unknown]
